FAERS Safety Report 6879290-1 (Version None)
Quarter: 2010Q3

REPORT INFORMATION
  Report Type: 
  Country: None (occurrence: None)
  Receive Date: 20100728
  Receipt Date: 20100714
  Transmission Date: 20110219
  Serious: Yes (Other)
  Sender: FDA-Public Use
  Company Number: US-SANOFI-AVENTIS-2010SA041190

PATIENT
  Age: 79 Year
  Sex: Male

DRUGS (11)
  1. MULTAQ [Suspect]
     Indication: ATRIAL FLUTTER
     Route: 048
     Dates: start: 20100701, end: 20100714
  2. CYCLOSPORINE [Concomitant]
  3. ALLOPURINOL [Concomitant]
  4. DOCUSATE [Concomitant]
  5. CALCIUM [Concomitant]
  6. ASPIRIN [Concomitant]
  7. COUMADIN [Concomitant]
  8. LOVAZA [Concomitant]
  9. ALENDRONATE SODIUM [Concomitant]
  10. KAYEXALATE [Concomitant]
  11. METOPROLOL [Concomitant]

REACTIONS (3)
  - BLOOD CREATININE INCREASED [None]
  - CONDITION AGGRAVATED [None]
  - RENAL FAILURE CHRONIC [None]
